FAERS Safety Report 8839405 (Version 3)
Quarter: 2013Q1

REPORT INFORMATION
  Report Type: Spontaneous
  Country: US (occurrence: US)
  Receive Date: 20121015
  Receipt Date: 20130318
  Transmission Date: 20140127
  Serious: Yes (Life-Threatening, Hospitalization)
  Sender: FDA-Public Use
  Company Number: US-BAYER-2012-105248

PATIENT
  Age: 22 Year
  Sex: Female
  Weight: 71.2 kg

DRUGS (6)
  1. YAZ [Suspect]
     Indication: CONTRACEPTION
     Dosage: UNK
     Dates: start: 20080104, end: 201006
  2. YAZ [Suspect]
     Indication: CONTRACEPTION
     Dosage: UNK
     Dates: start: 20100930, end: 20101223
  3. GIANVI [Suspect]
     Indication: CONTRACEPTION
     Dosage: UNK
     Dates: start: 20100708, end: 20100930
  4. GIANVI [Suspect]
     Indication: CONTRACEPTION
     Dosage: UNK
     Dates: start: 20101223, end: 20110131
  5. ONE A DAY PLUS IRON [FERROUS FUMARATE,VITAMINS NOS] [Concomitant]
     Dosage: UNK
     Dates: start: 20110121
  6. AFRIN SPRAY [Concomitant]
     Dosage: UNK
     Route: 045
     Dates: start: 20110131

REACTIONS (8)
  - Pulmonary embolism [None]
  - Pulmonary infarction [None]
  - Dyspnoea [None]
  - Chest pain [None]
  - Anxiety [None]
  - Back pain [None]
  - Oropharyngeal pain [None]
  - Feeling cold [None]
